FAERS Safety Report 20075286 (Version 1)
Quarter: 2021Q4

REPORT INFORMATION
  Report Type: Spontaneous
  Country: PL (occurrence: PL)
  Receive Date: 20211116
  Receipt Date: 20211116
  Transmission Date: 20220304
  Serious: Yes (Other)
  Sender: FDA-Public Use
  Company Number: PL-ALXN-A202112270

PATIENT
  Sex: Female

DRUGS (1)
  1. SOLIRIS [Suspect]
     Active Substance: ECULIZUMAB
     Indication: Atypical haemolytic uraemic syndrome
     Dosage: 1200 MG
     Route: 042
     Dates: start: 201910

REACTIONS (1)
  - Hyperparathyroidism tertiary [Recovering/Resolving]

NARRATIVE: CASE EVENT DATE: 20210501
